FAERS Safety Report 4974075-5 (Version None)
Quarter: 2006Q2

REPORT INFORMATION
  Report Type: 
  Country: None (occurrence: None)
  Receive Date: 20060417
  Receipt Date: 20060329
  Transmission Date: 20061013
  Serious: Yes (Other)
  Sender: FDA-Public Use
  Company Number: GB-JNJFOC-20060300877

PATIENT
  Age: 55 Year
  Sex: Male

DRUGS (10)
  1. FLUTICASONE PROPIONATE [Suspect]
     Indication: DRUG USE FOR UNKNOWN INDICATION
     Route: 065
  2. ITRACONAZOLE [Suspect]
     Indication: BRONCHOPULMONARY ASPERGILLOSIS ALLERGIC
     Route: 065
  3. TERBUTALINE SULFATE [Concomitant]
     Route: 065
  4. MONTELUKAST [Concomitant]
     Dosage: 10MG PER DAY
     Route: 065
  5. ALENDRONATE SODIUM [Concomitant]
     Dosage: 75MG WEEKLY
     Route: 065
  6. AMITRIPTYLINE HCL [Concomitant]
     Dosage: 50MG PER DAY
     Route: 065
  7. CODEINE PHOSPHATE [Concomitant]
     Dosage: 60MG UNKNOWN
     Route: 065
  8. FORMOTEROL [Concomitant]
     Route: 065
  9. ORAL STEROIDS [Concomitant]
     Route: 048
  10. PREDNISOLONE [Concomitant]
     Route: 048

REACTIONS (11)
  - ACNE [None]
  - CUSHING'S SYNDROME [None]
  - CUSHINGOID [None]
  - DRUG INTERACTION [None]
  - FATIGUE [None]
  - GLUCOSE TOLERANCE IMPAIRED [None]
  - HYPOTHALAMO-PITUITARY DISORDERS [None]
  - INCREASED TENDENCY TO BRUISE [None]
  - LIPOHYPERTROPHY [None]
  - MYOPATHY [None]
  - SWELLING FACE [None]
